FAERS Safety Report 13685467 (Version 1)
Quarter: 2017Q2

REPORT INFORMATION
  Report Type: Report from Study
  Country: US (occurrence: US)
  Receive Date: 20170623
  Receipt Date: 20170623
  Transmission Date: 20170830
  Serious: Yes (Hospitalization)
  Sender: FDA-Public Use
  Company Number: US-ACTELION-A-US2017-155547

PATIENT
  Age: 70 Year
  Sex: Female

DRUGS (13)
  1. FLECAINIDE [Concomitant]
     Active Substance: FLECAINIDE
  2. NIFEDIPINE. [Concomitant]
     Active Substance: NIFEDIPINE
  3. TRACLEER [Suspect]
     Active Substance: BOSENTAN
     Indication: PULMONARY ARTERIAL HYPERTENSION
     Dosage: 125 MG, BID
     Route: 048
  4. NAPROXEN. [Concomitant]
     Active Substance: NAPROXEN
  5. HYDROXYCHLOROQUINE [Concomitant]
     Active Substance: HYDROXYCHLOROQUINE
  6. PROAIR HFA [Concomitant]
     Active Substance: ALBUTEROL SULFATE
  7. ATORVASTATIN [Concomitant]
     Active Substance: ATORVASTATIN
  8. LANSOPRAZOLE. [Concomitant]
     Active Substance: LANSOPRAZOLE
  9. DICLOFENAC [Concomitant]
     Active Substance: DICLOFENAC
  10. ADVAIR HFA [Concomitant]
     Active Substance: FLUTICASONE PROPIONATE\SALMETEROL XINAFOATE
  11. MONTELUKAST [Concomitant]
     Active Substance: MONTELUKAST SODIUM
  12. PROPANOLOL [Concomitant]
     Active Substance: PROPRANOLOL HYDROCHLORIDE
  13. OMEGA 3 [Concomitant]
     Active Substance: OMEGA-3 FATTY ACIDS

REACTIONS (3)
  - Joint swelling [Unknown]
  - Contusion [Unknown]
  - Joint injury [Unknown]

NARRATIVE: CASE EVENT DATE: 20170612
